FAERS Safety Report 15439264 (Version 3)
Quarter: 2022Q3

REPORT INFORMATION
  Report Type: Spontaneous
  Country: ES (occurrence: ES)
  Receive Date: 20180928
  Receipt Date: 20220708
  Transmission Date: 20221027
  Serious: Yes (Other)
  Sender: FDA-Public Use
  Company Number: ES-ASTELLAS-2018US040798

PATIENT
  Age: 52 Year
  Sex: Male

DRUGS (13)
  1. RITUXIMAB [Suspect]
     Active Substance: RITUXIMAB
     Indication: Product used for unknown indication
     Dosage: SIX CYCLES
     Route: 065
     Dates: start: 201311
  2. RITUXIMAB [Suspect]
     Active Substance: RITUXIMAB
     Route: 065
     Dates: start: 201505
  3. RITUXIMAB [Suspect]
     Active Substance: RITUXIMAB
     Route: 065
     Dates: start: 201407
  4. VINCRISTINE SULFATE [Suspect]
     Active Substance: VINCRISTINE SULFATE
     Indication: Product used for unknown indication
     Dosage: CYCLIC (SIX CYCLES)
     Route: 065
     Dates: start: 201407
  5. IBRUTINIB [Suspect]
     Active Substance: IBRUTINIB
     Indication: Product used for unknown indication
     Route: 065
     Dates: start: 201502
  6. IBRUTINIB [Suspect]
     Active Substance: IBRUTINIB
     Route: 065
     Dates: start: 201801
  7. IDELALISIB [Suspect]
     Active Substance: IDELALISIB
     Indication: Product used for unknown indication
     Route: 065
     Dates: end: 201712
  8. IDELALISIB [Suspect]
     Active Substance: IDELALISIB
     Route: 065
     Dates: start: 201311
  9. IDELALISIB [Suspect]
     Active Substance: IDELALISIB
     Route: 065
     Dates: start: 201505
  10. BENDAMUSTINE HYDROCHLORIDE [Suspect]
     Active Substance: BENDAMUSTINE HYDROCHLORIDE
     Indication: Product used for unknown indication
     Dosage: CYCLIC (SIX CYCLES)
     Route: 042
     Dates: start: 201311
  11. CYCLOPHOSPHAMIDE [Suspect]
     Active Substance: CYCLOPHOSPHAMIDE
     Indication: Product used for unknown indication
     Dosage: CYCLIC (SIX CYCLES)
     Route: 065
     Dates: start: 201407
  12. DOXORUBICIN HYDROCHLORIDE [Suspect]
     Active Substance: DOXORUBICIN HYDROCHLORIDE
     Indication: Product used for unknown indication
     Dosage: CYCLIC (SIX CYCLES)
     Route: 065
     Dates: start: 201407
  13. PREDNISONE [Suspect]
     Active Substance: PREDNISONE
     Indication: Product used for unknown indication
     Dosage: CYCLIC (SIX CYCLES)
     Route: 065
     Dates: start: 201407

REACTIONS (2)
  - Therapy partial responder [Unknown]
  - Chronic lymphocytic leukaemia [Unknown]

NARRATIVE: CASE EVENT DATE: 20131101
